FAERS Safety Report 6855670-5 (Version None)
Quarter: 2010Q3

REPORT INFORMATION
  Report Type: 
  Country: None (occurrence: None)
  Receive Date: 20100719
  Receipt Date: 20091007
  Transmission Date: 20110219
  Serious: No
  Sender: FDA-Public Use
  Company Number: US-KINGPHARMUSA00001-K200901246

PATIENT
  Sex: Female

DRUGS (3)
  1. LEVOXYL [Suspect]
     Indication: AUTOIMMUNE THYROIDITIS
     Dosage: 137 MCG, QD
     Route: 048
  2. LEVOXYL [Suspect]
     Dosage: 112 MCG, QD
     Route: 048
  3. CYTOMEL [Concomitant]
     Indication: AUTOIMMUNE THYROIDITIS
     Dosage: UNK

REACTIONS (2)
  - BLOOD IRON DECREASED [None]
  - PARAESTHESIA [None]
